FAERS Safety Report 25816709 (Version 2)
Quarter: 2025Q3

REPORT INFORMATION
  Report Type: Spontaneous
  Country: KE (occurrence: KE)
  Receive Date: 20250918
  Receipt Date: 20250922
  Transmission Date: 20251020
  Serious: Yes (Other)
  Sender: ROCHE
  Company Number: KE-ROCHE-10000384844

PATIENT

DRUGS (1)
  1. AVASTIN [Suspect]
     Active Substance: BEVACIZUMAB
     Indication: Diabetic retinal oedema
     Route: 031

REACTIONS (9)
  - Visual impairment [Unknown]
  - Eye pain [Unknown]
  - Headache [Unknown]
  - Photophobia [Unknown]
  - Eye swelling [Unknown]
  - Erythema [Unknown]
  - Off label use [Unknown]
  - Blindness [Unknown]
  - Off label use [Unknown]
